FAERS Safety Report 8312313-1 (Version None)
Quarter: 2012Q2

REPORT INFORMATION
  Report Type: 
  Country: None (occurrence: None)
  Receive Date: 20120425
  Receipt Date: 20120416
  Transmission Date: 20120825
  Serious: Yes (Hospitalization, Other)
  Sender: FDA-Public Use
  Company Number: US-ELI_LILLY_AND_COMPANY-US201110005923

PATIENT
  Sex: Female

DRUGS (10)
  1. POTASSIUM CHLORIDE [Concomitant]
     Dosage: 20 MEQ, QD
  2. ATENOLOL [Concomitant]
     Dosage: 50 MG, EACH MORNING
  3. TORSEMIDE [Concomitant]
     Dosage: 20 MG, UNK
  4. NAPROXEN (ALEVE) [Concomitant]
  5. CITALOPRAM HYDROBROMIDE [Concomitant]
     Dosage: 40 MG, 1.5 TABLETS QD
  6. EFFIENT [Suspect]
     Indication: STENT PLACEMENT
     Dosage: 10 MG, QD
     Dates: start: 20110401
  7. ASPIRIN [Concomitant]
     Dosage: 81 MG, QD
  8. NITROSTAT [Concomitant]
     Dosage: 0.4 MG, UNK
  9. AMLODIPINE [Concomitant]
     Dosage: 10 MG, QD
  10. ATENOLOL [Concomitant]
     Dosage: 25 MG, EACH EVENING

REACTIONS (11)
  - ANXIETY [None]
  - FLUID OVERLOAD [None]
  - HAEMOGLOBIN DECREASED [None]
  - HYPERLIPIDAEMIA [None]
  - INCORRECT STORAGE OF DRUG [None]
  - CARDIAC FAILURE CONGESTIVE [None]
  - ARTERIOVENOUS MALFORMATION [None]
  - PEPTIC ULCER [None]
  - FEELING ABNORMAL [None]
  - GASTROINTESTINAL HAEMORRHAGE [None]
  - DEPRESSION [None]
